FAERS Safety Report 7543503-3 (Version None)
Quarter: 2011Q2

REPORT INFORMATION
  Report Type: 
  Country: None (occurrence: None)
  Receive Date: 20110524
  Receipt Date: 20110217
  Transmission Date: 20111010
  Serious: No
  Sender: FDA-Public Use
  Company Number: 022935

PATIENT
  Sex: Female
  Weight: 72.6 kg

DRUGS (14)
  1. DICYCLOMINE [Concomitant]
  2. SEROQUEL [Concomitant]
  3. AMBIEN [Concomitant]
  4. LIPITOR [Concomitant]
  5. GEODON [Concomitant]
  6. METHOTREXATE [Concomitant]
  7. CIMZIA [Suspect]
     Indication: CROHN'S DISEASE
     Dosage: (SUBCUTANEOUS) ; (2 SYRINGES MONTHLY SUBCUTANEOUS)
     Route: 058
     Dates: start: 20100826
  8. CIMZIA [Suspect]
     Indication: CROHN'S DISEASE
     Dosage: (SUBCUTANEOUS) ; (2 SYRINGES MONTHLY SUBCUTANEOUS)
     Route: 058
     Dates: start: 20100901, end: 20101201
  9. PROPRANOLOL [Concomitant]
  10. LUNESTA [Concomitant]
  11. NEURONTIN [Concomitant]
  12. ATIVAN [Concomitant]
  13. RESTASIS [Concomitant]
  14. PAXIL [Concomitant]

REACTIONS (7)
  - PAIN IN EXTREMITY [None]
  - OEDEMA PERIPHERAL [None]
  - RASH [None]
  - SPEECH DISORDER [None]
  - TINNITUS [None]
  - MALAISE [None]
  - EAR INFECTION [None]
